FAERS Safety Report 18140186 (Version 1)
Quarter: 2020Q3

REPORT INFORMATION
  Report Type: Spontaneous
  Country: US (occurrence: US)
  Receive Date: 20200812
  Receipt Date: 20200812
  Transmission Date: 20201103
  Serious: No
  Sender: FDA-Public Use
  Company Number: US-009507513-2008USA004721

PATIENT
  Age: 61 Year
  Sex: Female
  Weight: 61.22 kg

DRUGS (11)
  1. LEXAPRO [Concomitant]
     Active Substance: ESCITALOPRAM OXALATE
  2. ALPRAZOLAM. [Concomitant]
     Active Substance: ALPRAZOLAM
  3. XANAX [Concomitant]
     Active Substance: ALPRAZOLAM
  4. SINEMET CR [Suspect]
     Active Substance: CARBIDOPA\LEVODOPA
     Dosage: UNK
     Route: 048
  5. CHOLECALCIFEROL [Concomitant]
     Active Substance: CHOLECALCIFEROL
  6. VITAMIN E [Concomitant]
     Active Substance: .ALPHA.-TOCOPHEROL
  7. BUPROPION. [Concomitant]
     Active Substance: BUPROPION
  8. SYNTHROID [Concomitant]
     Active Substance: LEVOTHYROXINE SODIUM
  9. TRIMETHOBENZAMIDE HYDROCHLORIDE. [Concomitant]
     Active Substance: TRIMETHOBENZAMIDE HYDROCHLORIDE
  10. AMANTADINE. [Suspect]
     Active Substance: AMANTADINE HYDROCHLORIDE
     Indication: DYSKINESIA
     Dosage: 274 MILLIGRAM, AT BED TIME
     Route: 048
     Dates: start: 20180202, end: 20200611
  11. XADAGO [Suspect]
     Active Substance: SAFINAMIDE MESYLATE
     Dosage: UNK
     Dates: start: 2012, end: 2019

REACTIONS (13)
  - Dyschromatopsia [Recovered/Resolved]
  - Visual impairment [Unknown]
  - Malaise [Unknown]
  - Fatigue [Recovered/Resolved]
  - Gastroenteritis viral [Recovered/Resolved]
  - Abdominal pain upper [Recovered/Resolved]
  - Therapeutic product effect incomplete [Unknown]
  - Diarrhoea [Recovered/Resolved]
  - Nausea [Unknown]
  - Dyskinesia [Recovered/Resolved]
  - Asthenia [Recovered/Resolved]
  - Decreased appetite [Recovered/Resolved]
  - Delayed light adaptation [Recovered/Resolved]

NARRATIVE: CASE EVENT DATE: 2019
